FAERS Safety Report 5706700-5 (Version None)
Quarter: 2008Q2

REPORT INFORMATION
  Report Type: 
  Country: None (occurrence: None)
  Receive Date: 20080416
  Receipt Date: 20080408
  Transmission Date: 20081010
  Serious: Yes (Other)
  Sender: FDA-Public Use
  Company Number: DE-BAYER-200814688GPV

PATIENT
  Age: 63 Year
  Sex: Female
  Weight: 64 kg

DRUGS (6)
  1. AVELOX [Suspect]
     Indication: LIVER ABSCESS
     Route: 042
     Dates: start: 20080301, end: 20080303
  2. CEFUROXIME [Concomitant]
     Indication: LIVER ABSCESS
     Route: 042
     Dates: start: 20080301, end: 20080306
  3. ASPIRIN [Concomitant]
     Indication: ACUTE MYOCARDIAL INFARCTION
     Route: 065
     Dates: start: 20080204
  4. CLOPIDOGREL [Concomitant]
     Indication: ACUTE MYOCARDIAL INFARCTION
     Route: 065
     Dates: start: 20080204
  5. NEBILET [Concomitant]
     Indication: TACHYARRHYTHMIA
     Route: 065
  6. ZOCOR [Concomitant]
     Indication: CORONARY ARTERY DISEASE
     Route: 065

REACTIONS (2)
  - COAGULOPATHY [None]
  - HEPATIC ENZYME INCREASED [None]
